FAERS Safety Report 24427420 (Version 1)
Quarter: 2024Q4

REPORT INFORMATION
  Report Type: Spontaneous
  Country: US (occurrence: None)
  Receive Date: 20241011
  Receipt Date: 20241011
  Transmission Date: 20250115
  Serious: Yes (Other)
  Sender: Public
  Company Number: None

PATIENT
  Age: 76 Year
  Sex: Female
  Weight: 90 kg

DRUGS (10)
  1. AMLODIPINE [Suspect]
     Active Substance: AMLODIPINE BESYLATE
     Indication: Hypertension
  2. VALSARTAN [Suspect]
     Active Substance: VALSARTAN
  3. DEXLANSOPRAZOLE [Concomitant]
     Active Substance: DEXLANSOPRAZOLE
  4. TRIAMTERENE [Concomitant]
  5. AMLODIPINE [Concomitant]
  6. DEXILANT [Concomitant]
  7. Clonidine triamcinolone cream [Concomitant]
  8. FISH OIL [Concomitant]
     Active Substance: FISH OIL
  9. MONTELUKAST [Concomitant]
  10. LEVOCETIRIZINE [Concomitant]
     Active Substance: LEVOCETIRIZINE

REACTIONS (8)
  - Joint swelling [None]
  - Rash [None]
  - Rash [None]
  - Dyspnoea [None]
  - Dermatitis [None]
  - Eczema [None]
  - Epistaxis [None]
  - Pharyngeal haemorrhage [None]

NARRATIVE: CASE EVENT DATE: 20220120
